FAERS Safety Report 16387350 (Version 1)
Quarter: 2019Q2

REPORT INFORMATION
  Report Type: Other
  Country: IL (occurrence: IL)
  Receive Date: 20190604
  Receipt Date: 20190604
  Transmission Date: 20190711
  Serious: Yes (Hospitalization, Other)
  Sender: FDA-Public Use
  Company Number: IL-DEXPHARM-20190387

PATIENT
  Age: 66 Year
  Sex: Female

DRUGS (9)
  1. HYDROCHLOROTHIAZIDE. [Concomitant]
     Active Substance: HYDROCHLOROTHIAZIDE
     Dosage: DAILY DOSE: 12.5 MG MILLGRAM(S) EVERY DAYS
  2. RALOXIFENE. [Concomitant]
     Active Substance: RALOXIFENE
     Dosage: DAILY DOSE: 60 MG MILLGRAM(S) EVERY DAYS
  3. RASAGILINE. [Concomitant]
     Active Substance: RASAGILINE
     Dosage: DAILY DOSE: 1 MG MILLGRAM(S) EVERY DAYS
  4. CITALOPRAM [Concomitant]
     Active Substance: CITALOPRAM HYDROBROMIDE
     Dosage: DAILY DOSE: 20 MG MILLGRAM(S) EVERY DAYS
  5. CLARITHROMYCIN. [Suspect]
     Active Substance: CLARITHROMYCIN
     Indication: HELICOBACTER INFECTION
  6. CARBIDOPA/LEVODOPA/ENTACAPONE [Concomitant]
     Active Substance: CARBIDOPA\ENTACAPONE\LEVODOPA
     Dosage: DAILY DOSE: 3 MG MILLGRAM(S) EVERY DAYS
  7. AMOXICILLIN. [Concomitant]
     Active Substance: AMOXICILLIN
  8. OMEPRAZOLE. [Interacting]
     Active Substance: OMEPRAZOLE
     Indication: HELICOBACTER INFECTION
  9. ENALAPRIL [Concomitant]
     Active Substance: ENALAPRIL
     Dosage: DAILY DOSE: 20 MG MILLGRAM(S) EVERY DAYS

REACTIONS (1)
  - Mania [Recovered/Resolved]
